FAERS Safety Report 9100390 (Version 1)
Quarter: 2013Q1

REPORT INFORMATION
  Report Type: Spontaneous
  Country: KR (occurrence: KR)
  Receive Date: 20130215
  Receipt Date: 20130215
  Transmission Date: 20140127
  Serious: Yes (Death)
  Sender: FDA-Public Use
  Company Number: KR-ELI_LILLY_AND_COMPANY-KR201302001874

PATIENT
  Age: 73 Year
  Sex: Male

DRUGS (1)
  1. HUMALOG 50% LISPRO, 50% NPL [Suspect]
     Indication: TYPE 2 DIABETES MELLITUS
     Dosage: 8 U, BID
     Route: 058
     Dates: start: 201301

REACTIONS (1)
  - Death [Fatal]
